FAERS Safety Report 10170147 (Version 2)
Quarter: 2014Q3

REPORT INFORMATION
  Report Type: Spontaneous
  Country: FI (occurrence: FI)
  Receive Date: 20140513
  Receipt Date: 20140728
  Transmission Date: 20150326
  Serious: Yes (Death)
  Sender: FDA-Public Use
  Company Number: FI-TEVA-479120ISR

PATIENT
  Age: 35 Year
  Sex: Male

DRUGS (2)
  1. TAMBOCOR [Interacting]
     Active Substance: FLECAINIDE ACETATE
     Indication: ATRIAL FIBRILLATION
     Dosage: 200 MILLIGRAM DAILY; 1 TABLET DAILY, 2 TABLETS DAILY IF NECESSARY
     Route: 048
     Dates: start: 20140312
  2. BISOPROLOL RATIOPHARM [Suspect]
     Active Substance: BISOPROLOL
     Indication: ATRIAL FIBRILLATION
     Dosage: 5 MILLIGRAM DAILY;
     Route: 048
     Dates: start: 20140312

REACTIONS (3)
  - Arrhythmia [Fatal]
  - Ventricular fibrillation [Fatal]
  - Drug interaction [Fatal]

NARRATIVE: CASE EVENT DATE: 20140320
